FAERS Safety Report 15716999 (Version 2)
Quarter: 2019Q1

REPORT INFORMATION
  Report Type: Spontaneous
  Country: US (occurrence: US)
  Receive Date: 20181213
  Receipt Date: 20190208
  Transmission Date: 20190417
  Serious: No
  Sender: FDA-Public Use
  Company Number: US-PFIZER INC-2018510849

PATIENT
  Age: 49 Year
  Sex: Female

DRUGS (1)
  1. XELJANZ [Suspect]
     Active Substance: TOFACITINIB CITRATE
     Dosage: 5 MG, 1X/DAY

REACTIONS (7)
  - Joint swelling [Unknown]
  - Liver function test increased [Unknown]
  - Fall [Unknown]
  - Peripheral swelling [Unknown]
  - Hypoaesthesia [Unknown]
  - Renal function test abnormal [Unknown]
  - Burning sensation [Unknown]
